FAERS Safety Report 17370914 (Version 2)
Quarter: 2020Q1

REPORT INFORMATION
  Report Type: Spontaneous
  Country: JP (occurrence: JP)
  Receive Date: 20200205
  Receipt Date: 20200317
  Transmission Date: 20200409
  Serious: Yes (Death, Other)
  Sender: FDA-Public Use
  Company Number: JP-ASTELLAS-2020JP002479

PATIENT
  Age: 79 Year
  Sex: Female
  Weight: 31.8 kg

DRUGS (7)
  1. PROGRAF [Suspect]
     Active Substance: TACROLIMUS
     Indication: RHEUMATOID ARTHRITIS
     Route: 048
  2. REBAMIPIDE [Concomitant]
     Active Substance: REBAMIPIDE
     Indication: RHEUMATOID ARTHRITIS
     Route: 048
  3. ERYTHROCIN #2 [Concomitant]
     Indication: BRONCHIECTASIS
     Dosage: 400 MG/DAY, UNKNOWN FREQ.
     Route: 048
     Dates: start: 20060520
  4. LASIX-R [Concomitant]
     Active Substance: FUROSEMIDE\RESERPINE
     Indication: CHRONIC RESPIRATORY FAILURE
     Route: 048
     Dates: start: 20101207
  5. PREDONINE [Suspect]
     Active Substance: PREDNISOLONE
     Indication: RHEUMATOID ARTHRITIS
     Route: 048
  6. LUPRAC [Concomitant]
     Active Substance: TORSEMIDE
     Indication: CHRONIC RESPIRATORY FAILURE
     Route: 048
     Dates: start: 20060508
  7. MOBIC [Concomitant]
     Active Substance: MELOXICAM
     Indication: RHEUMATOID ARTHRITIS
     Route: 048

REACTIONS (3)
  - Prescribed underdose [Unknown]
  - Systemic mycosis [Recovering/Resolving]
  - Systemic mycosis [Recovering/Resolving]

NARRATIVE: CASE EVENT DATE: 201406
